FAERS Safety Report 5512113-1 (Version None)
Quarter: 2007Q4

REPORT INFORMATION
  Report Type: 
  Country: None (occurrence: None)
  Receive Date: 20071109
  Receipt Date: 20071030
  Transmission Date: 20080405
  Serious: Yes (Other)
  Sender: FDA-Public Use
  Company Number: GB-PFIZER INC-2007093890

PATIENT
  Age: 69 Year
  Sex: Male

DRUGS (5)
  1. CHAMPIX [Suspect]
     Indication: SMOKING CESSATION THERAPY
     Dosage: FREQ:1 DOSE FORM
     Route: 048
  2. ACETYLSALICYLIC ACID SRT [Concomitant]
     Indication: BLOOD PRESSURE INCREASED
     Route: 048
  3. ACETYLSALICYLIC ACID SRT [Concomitant]
     Indication: DEEP VEIN THROMBOSIS
     Route: 048
  4. ATENOLOL [Concomitant]
     Indication: BLOOD PRESSURE INCREASED
     Route: 048
  5. LISINOPRIL [Concomitant]
     Indication: BLOOD PRESSURE INCREASED
     Route: 048

REACTIONS (2)
  - ORTHOSTATIC HYPOTENSION [None]
  - RENAL IMPAIRMENT [None]
